FAERS Safety Report 8394001-9 (Version None)
Quarter: 2012Q2

REPORT INFORMATION
  Report Type: 
  Country: None (occurrence: None)
  Receive Date: 20120523
  Receipt Date: 20120512
  Transmission Date: 20120825
  Serious: Yes (Other)
  Sender: FDA-Public Use
  Company Number: 2012000120

PATIENT
  Age: 48 Year
  Sex: Male

DRUGS (1)
  1. ACEON [Suspect]
     Indication: HYPERTENSION
     Dosage: 10 MG, QD, ORAL
     Route: 048
     Dates: start: 20110101, end: 20110101

REACTIONS (4)
  - PALPITATIONS [None]
  - VENTRICULAR EXTRASYSTOLES [None]
  - DYSPNOEA [None]
  - HEART RATE IRREGULAR [None]
